FAERS Safety Report 4375914-1 (Version None)
Quarter: 2004Q2

REPORT INFORMATION
  Report Type: 
  Country: None (occurrence: None)
  Receive Date: 20040607
  Receipt Date: 20040528
  Transmission Date: 20050107
  Serious: Yes (Other)
  Sender: FDA-Public Use
  Company Number: GBWYE795002JUN04

PATIENT
  Sex: Male

DRUGS (3)
  1. EFFEXOR [Suspect]
     Indication: DEPRESSION
     Dosage: SEE IMAGE
     Route: 048
  2. DIAZEPAM [Concomitant]
  3. CANDESARTAN (CANDESARTAN) [Concomitant]

REACTIONS (3)
  - CLONUS [None]
  - NERVOUS SYSTEM DISORDER [None]
  - SOMNOLENCE [None]
